FAERS Safety Report 10252273 (Version 1)
Quarter: 2014Q2

REPORT INFORMATION
  Report Type: Spontaneous
  Country: FR (occurrence: FR)
  Receive Date: 20140623
  Receipt Date: 20140623
  Transmission Date: 20141212
  Serious: Yes (Hospitalization)
  Sender: FDA-Public Use
  Company Number: FR-JNJFOC-20140613606

PATIENT
  Age: 44 Year
  Sex: Female

DRUGS (10)
  1. IXPRIM [Suspect]
     Indication: CUTANEOUS LUPUS ERYTHEMATOSUS
     Route: 048
     Dates: start: 20140515, end: 20140519
  2. BENLYSTA [Suspect]
     Indication: CUTANEOUS LUPUS ERYTHEMATOSUS
     Route: 041
     Dates: start: 201403, end: 20140506
  3. PLAQUENIL [Concomitant]
     Indication: MYALGIA
     Route: 048
  4. PLAQUENIL [Concomitant]
     Indication: MYALGIA
     Route: 048
     Dates: end: 201405
  5. PLAQUENIL [Concomitant]
     Indication: ARTHRALGIA
     Route: 048
  6. PLAQUENIL [Concomitant]
     Indication: ARTHRALGIA
     Route: 048
     Dates: end: 201405
  7. VOLTARENE [Concomitant]
     Indication: MYALGIA
     Route: 048
  8. VOLTARENE [Concomitant]
     Indication: MYALGIA
     Route: 048
  9. VOLTARENE [Concomitant]
     Indication: ARTHRALGIA
     Route: 048
  10. VOLTARENE [Concomitant]
     Indication: ARTHRALGIA
     Route: 048

REACTIONS (1)
  - Pancreatitis acute [Unknown]
